FAERS Safety Report 9233623 (Version 1)
Quarter: 2013Q2

REPORT INFORMATION
  Report Type: Report from Study
  Country: US (occurrence: US)
  Receive Date: 20130416
  Receipt Date: 20130416
  Transmission Date: 20140414
  Serious: Yes (Other)
  Sender: FDA-Public Use
  Company Number: US-ABBOTT-13P-163-1074498-00

PATIENT
  Age: 82 Year
  Sex: Male

DRUGS (8)
  1. HUMIRA [Suspect]
     Indication: PSORIASIS
  2. HUMIRA [Suspect]
  3. VICODIN [Suspect]
     Indication: BACK PAIN
  4. OXYCODONE [Suspect]
     Indication: PRODUCT USED FOR UNKNOWN INDICATION
  5. FLOMAX [Concomitant]
     Indication: PROSTATIC DISORDER
  6. PROZAC [Concomitant]
     Indication: PRODUCT USED FOR UNKNOWN INDICATION
  7. TAMISOL [Concomitant]
     Indication: PRODUCT USED FOR UNKNOWN INDICATION
  8. LASIX [Concomitant]

REACTIONS (9)
  - Carpal tunnel decompression [Not Recovered/Not Resolved]
  - Pruritus [Unknown]
  - Psoriasis [Unknown]
  - Oedema peripheral [Unknown]
  - Thinking abnormal [Unknown]
  - Tongue disorder [Unknown]
  - Thinking abnormal [Unknown]
  - Back pain [Unknown]
  - Constipation [Unknown]
